FAERS Safety Report 20368750 (Version 1)
Quarter: 2022Q1

REPORT INFORMATION
  Report Type: Spontaneous
  Country: CA (occurrence: CA)
  Receive Date: 20220124
  Receipt Date: 20220124
  Transmission Date: 20220423
  Serious: Yes (Life-Threatening, Hospitalization, Other)
  Sender: FDA-Public Use
  Company Number: None

PATIENT
  Age: 4 Year
  Sex: Female
  Weight: 15 kg

DRUGS (8)
  1. CARBOPLATIN [Suspect]
     Active Substance: CARBOPLATIN
     Indication: Product used for unknown indication
     Dosage: ONCE
     Route: 042
  2. IFOSFAMIDE [Suspect]
     Active Substance: IFOSFAMIDE
     Indication: Brain neoplasm
     Dosage: POWDER FOR SOLUTION INTRAVENOUS
     Route: 042
  3. EMEND [Concomitant]
     Active Substance: APREPITANT
  4. ETOPOSIDE [Concomitant]
     Active Substance: ETOPOSIDE
  5. GRANULOCYTE COLONY-STIMULATING FACTOR NOS [Concomitant]
     Active Substance: GRANULOCYTE COLONY-STIMULATING FACTOR NOS
  6. MESNA [Concomitant]
     Active Substance: MESNA
  7. ONDANSETRON [Concomitant]
     Active Substance: ONDANSETRON
  8. SEPTRA [Concomitant]
     Active Substance: SULFAMETHOXAZOLE\TRIMETHOPRIM
     Dosage: INJECTION

REACTIONS (2)
  - Febrile neutropenia [Unknown]
  - SARS-CoV-2 test negative [Unknown]
